FAERS Safety Report 9667837 (Version 1)
Quarter: 2013Q4

REPORT INFORMATION
  Report Type: Spontaneous
  Country: GB (occurrence: GB)
  Receive Date: 20131104
  Receipt Date: 20131104
  Transmission Date: 20140711
  Serious: Yes (Other)
  Sender: FDA-Public Use
  Company Number: GB-009507513-1311GBR000217

PATIENT
  Age: 12 Year
  Sex: Female
  Weight: 52 kg

DRUGS (3)
  1. SINGULAIR [Suspect]
     Dosage: 1 DF, QD
     Route: 048
     Dates: start: 2011, end: 20130102
  2. LORATADINE [Concomitant]
  3. ALBUTEROL SULFATE [Concomitant]
     Route: 055

REACTIONS (2)
  - Suicidal ideation [Recovered/Resolved]
  - Depression [Recovered/Resolved]
